FAERS Safety Report 6143503-4 (Version None)
Quarter: 2009Q2

REPORT INFORMATION
  Report Type: 
  Country: None (occurrence: None)
  Receive Date: 20090401
  Receipt Date: 20090325
  Transmission Date: 20091009
  Serious: Yes (Death, Hospitalization)
  Sender: FDA-Public Use
  Company Number: POMP-1000527

PATIENT
  Age: 9 Month
  Sex: Female
  Weight: 7.6 kg

DRUGS (2)
  1. MYOZYME [Suspect]
     Indication: GLYCOGEN STORAGE DISEASE TYPE II
     Dosage: 120 MG, QW, INTRAVENOUS
     Route: 042
     Dates: start: 20081108
  2. MILRINONE LACTATE [Suspect]
     Indication: CARDIOMYOPATHY
     Dosage: INTRAVENOUS
     Route: 042

REACTIONS (4)
  - CONGESTIVE CARDIOMYOPATHY [None]
  - DISEASE PROGRESSION [None]
  - PYREXIA [None]
  - RESPIRATORY FAILURE [None]
